FAERS Safety Report 12609352 (Version 3)
Quarter: 2016Q4

REPORT INFORMATION
  Report Type: Report from Study
  Country: US (occurrence: US)
  Receive Date: 20160801
  Receipt Date: 20161106
  Transmission Date: 20170207
  Serious: Yes (Other)
  Sender: FDA-Public Use
  Company Number: US-AMGEN-USASL2016096595

PATIENT
  Age: 55 Year
  Sex: Female
  Weight: 64.4 kg

DRUGS (3)
  1. REPATHA [Suspect]
     Active Substance: EVOLOCUMAB
     Indication: BLOOD CHOLESTEROL ABNORMAL
     Dosage: 140 MG, Q2WK
     Route: 058
     Dates: start: 20160613
  2. CRESTOR [Concomitant]
     Active Substance: ROSUVASTATIN CALCIUM
     Indication: BLOOD CHOLESTEROL INCREASED
     Dosage: 5 MG, QD
     Dates: start: 20160210
  3. REPATHA [Suspect]
     Active Substance: EVOLOCUMAB
     Indication: HYPERCHOLESTEROLAEMIA

REACTIONS (22)
  - Head discomfort [Unknown]
  - Gait disturbance [Unknown]
  - Back pain [Recovered/Resolved]
  - Paraesthesia [Recovered/Resolved]
  - Palpitations [Unknown]
  - Discomfort [Recovering/Resolving]
  - Depression [Unknown]
  - Dysphonia [Unknown]
  - Fatigue [Not Recovered/Not Resolved]
  - Nausea [Unknown]
  - Mental impairment [Not Recovered/Not Resolved]
  - Headache [Unknown]
  - Hyperhidrosis [Recovered/Resolved]
  - Gastrointestinal disorder [Unknown]
  - Musculoskeletal chest pain [Unknown]
  - Gastrointestinal pain [Unknown]
  - Dyspepsia [Unknown]
  - Abdominal pain [Not Recovered/Not Resolved]
  - Amnesia [Recovered/Resolved]
  - Alopecia [Recovered/Resolved]
  - Confusional state [Not Recovered/Not Resolved]
  - Eye disorder [Unknown]

NARRATIVE: CASE EVENT DATE: 2016
